FAERS Safety Report 4498017-4 (Version None)
Quarter: 2004Q4

REPORT INFORMATION
  Report Type: 
  Country: None (occurrence: None)
  Receive Date: 20041109
  Receipt Date: 20041109
  Transmission Date: 20050328
  Serious: Yes (Hospitalization)
  Sender: FDA-Public Use
  Company Number: None

PATIENT
  Age: 73 Year
  Sex: Male

DRUGS (3)
  1. CYCLOPHOSPHAMIDE [Suspect]
     Indication: PROSTATE CANCER METASTATIC
     Dosage: 100MG PO Q HS X 14 DAYS REPEAT Q 28 DAYS
     Route: 048
     Dates: start: 20040801
  2. ETOPOSIDE [Suspect]
     Indication: PROSTATE CANCER METASTATIC
     Dosage: 100 MG PO Q HS X 14 DAYS REPEAT Q 28 DAYS
     Route: 048
     Dates: start: 20040801
  3. ESTRAMUSTINE [Suspect]
     Indication: PROSTATE CANCER METASTATIC
     Dosage: 280 MG PO Q HS X14 DAYS REPEAT Q 28 DAYS
     Route: 048
     Dates: start: 20040801

REACTIONS (1)
  - PAIN [None]
